FAERS Safety Report 7201479-2 (Version None)
Quarter: 2010Q4

REPORT INFORMATION
  Report Type: 
  Country: None (occurrence: None)
  Receive Date: 20101215
  Receipt Date: 20101129
  Transmission Date: 20110411
  Serious: Yes (Other)
  Sender: FDA-Public Use
  Company Number: THQ2000A00686

PATIENT
  Age: 81 Year
  Sex: Male

DRUGS (3)
  1. LANSOPRAZOLE [Suspect]
     Indication: DYSPEPSIA
     Dosage: 20 MG (1 D)
  2. OMEPRAZOLE [Suspect]
     Dosage: 20 MG
  3. PANTOPRAZOLE [Suspect]
     Dosage: 40 MG (1 D)

REACTIONS (3)
  - DRUG ERUPTION [None]
  - LICHENOID KERATOSIS [None]
  - RASH ERYTHEMATOUS [None]
